FAERS Safety Report 15989100 (Version 1)
Quarter: 2019Q1

REPORT INFORMATION
  Report Type: Spontaneous
  Country: AT (occurrence: AT)
  Receive Date: 20190221
  Receipt Date: 20190221
  Transmission Date: 20190418
  Serious: Yes (Life-Threatening)
  Sender: FDA-Public Use
  Company Number: AT-B.I. PHARMACEUTICALS,INC./RIDGEFIELD-2019-12-000594

PATIENT
  Age: 86 Year
  Sex: Male
  Weight: 79 kg

DRUGS (10)
  1. METFORMIN [Concomitant]
     Active Substance: METFORMIN HYDROCHLORIDE
     Indication: TYPE 2 DIABETES MELLITUS
     Dosage: 1 - 0 - 1/2; ADDITIONAL INFORMATION: SINCE 08-FEB-2019 PAUSED
     Route: 065
  2. DIAMICRON MR [Concomitant]
     Active Substance: GLICLAZIDE
     Indication: PRODUCT USED FOR UNKNOWN INDICATION
     Dosage: 1 - 0 - 0 - 0
     Route: 065
  3. CANDEBLO [Concomitant]
     Indication: PRODUCT USED FOR UNKNOWN INDICATION
     Dosage: 1 - 0 - 1 - 0
     Route: 065
  4. CARVEDILOL. [Concomitant]
     Active Substance: CARVEDILOL
     Indication: PRODUCT USED FOR UNKNOWN INDICATION
     Dosage: 1 - 0 - 1 - 0
     Route: 065
  5. THROMBO ASS [Concomitant]
     Active Substance: ASPIRIN
     Indication: PRODUCT USED FOR UNKNOWN INDICATION
     Dosage: 0 - 1 - 0 - 0
     Route: 065
  6. LANTUS PEN [Concomitant]
     Indication: TYPE 2 DIABETES MELLITUS
     Dosage: 0 - 0 - 16IE ;ADDITIONAL INFORMATION: PAUSED SINCE START OF JARDIANCE; FORM: PEN
     Route: 065
  7. JARDIANCE [Suspect]
     Active Substance: EMPAGLIFLOZIN
     Indication: TYPE 2 DIABETES MELLITUS
     Dosage: 1 - 0 - 0
     Route: 065
     Dates: start: 20190129, end: 20190208
  8. NITROLINGUAL [Concomitant]
     Active Substance: NITROGLYCERIN
     Indication: PRODUCT USED FOR UNKNOWN INDICATION
     Dosage: ; AS REQUIRED; IN CASE OF ANGINA PECTORIS 2 PUFFS, MAXIMUM 3 TIMES DAILY; FORM:  PUMPSPRAY
     Route: 065
  9. OLEOVIT D3 [Concomitant]
     Active Substance: CHOLECALCIFEROL
     Indication: PRODUCT USED FOR UNKNOWN INDICATION
     Dosage: 10 DROPS DAILY
     Route: 065
  10. SORTIS [Concomitant]
     Active Substance: ATORVASTATIN
     Indication: PRODUCT USED FOR UNKNOWN INDICATION
     Dosage: 0 - 0 - 1 - 0
     Route: 065

REACTIONS (3)
  - Pancreatitis acute [Not Recovered/Not Resolved]
  - Abdominal pain upper [Not Recovered/Not Resolved]
  - Dyspnoea [Not Recovered/Not Resolved]

NARRATIVE: CASE EVENT DATE: 20190208
